FAERS Safety Report 15612954 (Version 1)
Quarter: 2018Q4

REPORT INFORMATION
  Report Type: Spontaneous
  Country: US (occurrence: US)
  Receive Date: 20181113
  Receipt Date: 20181113
  Transmission Date: 20190205
  Serious: Yes (Other)
  Sender: FDA-Public Use
  Company Number: US-PFIZER INC-2018459092

PATIENT
  Age: 79 Year
  Sex: Female

DRUGS (4)
  1. LENALIDOMIDE [Concomitant]
     Active Substance: LENALIDOMIDE
     Dosage: 5 MG, CYCLIC DAILY 5 ADDITIONAL CYCLES OF MAINTENANCE THERAPY
     Route: 048
  2. CYTARABINE. [Suspect]
     Active Substance: CYTARABINE
     Indication: ACUTE MYELOID LEUKAEMIA
     Dosage: 2000 MG/M2, 1X/DAY ON DAYS 1 THROUGH 5 2 G/M2
     Route: 042
  3. LENALIDOMIDE [Concomitant]
     Active Substance: LENALIDOMIDE
     Indication: ACUTE MYELOID LEUKAEMIA
     Dosage: 10 MG, CYCLIC (DAILY BY MOUTH FOR 21 DAYS)
     Route: 048
  4. LENALIDOMIDE [Concomitant]
     Active Substance: LENALIDOMIDE
     Dosage: 10 MG, CYCLIC (DAILY, GIVEN FOR 21 DAYS OF A 28 DAY CYCLES FOLLOWED THE CYCLES OF CONSOLIDATION
     Route: 048

REACTIONS (3)
  - Febrile neutropenia [Recovered/Resolved]
  - Cytopenia [Recovered/Resolved]
  - Vulvitis [Recovered/Resolved]
